FAERS Safety Report 12953818 (Version 3)
Quarter: 2016Q4

REPORT INFORMATION
  Report Type: Spontaneous
  Country: PL (occurrence: PL)
  Receive Date: 20161118
  Receipt Date: 20161130
  Transmission Date: 20170207
  Serious: Yes (Death, Other)
  Sender: FDA-Public Use
  Company Number: PL-ROCHE-1856479

PATIENT
  Age: 53 Year
  Weight: 87 kg

DRUGS (4)
  1. CAPTOPRIL. [Concomitant]
     Active Substance: CAPTOPRIL
  2. ACTILYSE [Suspect]
     Active Substance: ALTEPLASE
     Indication: ISCHAEMIC STROKE
     Dosage: STARTED WITH 78 MG OF ALETPELASE BUT WAS GIVEN ONLY WITH 47 MG.
     Route: 042
     Dates: start: 20161109, end: 20161109
  3. INDAPEN [Concomitant]
     Active Substance: INDAPAMIDE
     Indication: BLOOD PRESSURE INCREASED
     Dosage: DOSE 1.4, ONE TABLET GIVEN AT 6.30
     Route: 048
  4. NEBILET [Concomitant]
     Active Substance: NEBIVOLOL
     Indication: BLOOD PRESSURE INCREASED
     Dosage: 1/4 TABLET GIVEN AT 6.30
     Route: 048

REACTIONS (11)
  - Anaphylactic shock [Fatal]
  - Pharyngeal oedema [Fatal]
  - Dyspnoea [Unknown]
  - Cyanosis [Unknown]
  - Blood pressure increased [Unknown]
  - Respiratory arrest [Unknown]
  - Oropharyngeal pain [Unknown]
  - Loss of consciousness [Unknown]
  - Wheezing [Unknown]
  - Respiratory failure [Fatal]
  - Laryngeal oedema [Fatal]

NARRATIVE: CASE EVENT DATE: 20161109
